FAERS Safety Report 7232941-4 (Version None)
Quarter: 2011Q1

REPORT INFORMATION
  Report Type: 
  Country: None (occurrence: None)
  Receive Date: 20110119
  Receipt Date: 20110112
  Transmission Date: 20110831
  Serious: Yes (Hospitalization)
  Sender: FDA-Public Use
  Company Number: AU-BAXTER-2009BH010038

PATIENT
  Age: 53 Year
  Sex: Male

DRUGS (4)
  1. ETOPOSIDE [Suspect]
     Indication: PRODUCT USED FOR UNKNOWN INDICATION
     Route: 042
     Dates: start: 20070613, end: 20070615
  2. IFOSFAMIDE [Suspect]
     Indication: PRODUCT USED FOR UNKNOWN INDICATION
     Route: 042
     Dates: start: 20070613, end: 20070615
  3. CARBOPLATIN [Suspect]
     Indication: PRODUCT USED FOR UNKNOWN INDICATION
     Route: 042
     Dates: start: 20070613, end: 20070613
  4. NEULASTA [Suspect]
     Indication: CHEMOTHERAPY
     Route: 058
     Dates: start: 20070617, end: 20070617

REACTIONS (2)
  - FEBRILE NEUTROPENIA [None]
  - DRUG INEFFECTIVE [None]
